FAERS Safety Report 16650320 (Version 1)
Quarter: 2019Q3

REPORT INFORMATION
  Report Type: Spontaneous
  Country: US (occurrence: US)
  Receive Date: 20190731
  Receipt Date: 20190731
  Transmission Date: 20191004
  Serious: No
  Sender: FDA-Public Use
  Company Number: US-TEVA-2019-US-1084343

PATIENT
  Sex: Female

DRUGS (1)
  1. NORTRIPTYLINE [Suspect]
     Active Substance: NORTRIPTYLINE
     Indication: DEPRESSION
     Dosage: 2 OR 3 TABLETS; INCREASED EACH WEEK UNTIL THE DOSING OF 25 MG, 4 TIMES DAILY
     Route: 048

REACTIONS (1)
  - Blood glucose increased [Not Recovered/Not Resolved]
